FAERS Safety Report 16496857 (Version 2)
Quarter: 2019Q3

REPORT INFORMATION
  Report Type: Spontaneous
  Country: US (occurrence: US)
  Receive Date: 20190628
  Receipt Date: 20190709
  Transmission Date: 20191004
  Serious: Yes (Death, Other)
  Sender: FDA-Public Use
  Company Number: US-CHIESI USA, INC.-US-2019CHI000231

PATIENT

DRUGS (1)
  1. CUROSURF [Suspect]
     Active Substance: PORACTANT ALFA
     Indication: NEONATAL RESPIRATORY DISTRESS SYNDROME
     Dosage: UNK
     Route: 065
     Dates: start: 20190602, end: 20190602

REACTIONS (2)
  - Pulmonary haemorrhage neonatal [Fatal]
  - Neonatal hypoxia [Unknown]

NARRATIVE: CASE EVENT DATE: 201906
